FAERS Safety Report 19901296 (Version 1)
Quarter: 2021Q3

REPORT INFORMATION
  Report Type: Spontaneous
  Country: US (occurrence: US)
  Receive Date: 20210930
  Receipt Date: 20210930
  Transmission Date: 20211014
  Serious: Yes (Death)
  Sender: FDA-Public Use
  Company Number: None

PATIENT
  Age: 63 Year
  Sex: Male

DRUGS (14)
  1. DROMABINOL [Concomitant]
  2. OMEPRAZOLE, [Concomitant]
  3. VIMPAT [Concomitant]
     Active Substance: LACOSAMIDE
  4. TEMOZOLOMIDE. [Suspect]
     Active Substance: TEMOZOLOMIDE
     Indication: LUNG NEOPLASM MALIGNANT
     Route: 048
     Dates: start: 20210622, end: 20210916
  5. TAMSULOSIN [Concomitant]
     Active Substance: TAMSULOSIN
  6. ALBUTEROL. [Concomitant]
     Active Substance: ALBUTEROL
  7. DEXAMETHASON [Concomitant]
     Active Substance: DEXAMETHASONE
  8. ONDANSETRON [Concomitant]
     Active Substance: ONDANSETRON
  9. PROCHLORPER [Concomitant]
  10. ATORVASTATIN [Concomitant]
     Active Substance: ATORVASTATIN
  11. FELECAINDIE [Concomitant]
  12. LEVTIRACETA [Concomitant]
  13. MULTIPLE VITAMIN [Concomitant]
     Active Substance: VITAMINS
  14. DIAZEPAM. [Concomitant]
     Active Substance: DIAZEPAM

REACTIONS (1)
  - Lung neoplasm malignant [None]

NARRATIVE: CASE EVENT DATE: 20210916
